FAERS Safety Report 5031822-4 (Version None)
Quarter: 2006Q2

REPORT INFORMATION
  Report Type: 
  Country: None (occurrence: None)
  Receive Date: 20060619
  Receipt Date: 20060602
  Transmission Date: 20061013
  Serious: Yes (Death, Other)
  Sender: FDA-Public Use
  Company Number: 2006RL000196

PATIENT

DRUGS (1)
  1. PROPRANOLOL HYDROCHLORIDE [Suspect]
     Indication: HEPATIC CIRRHOSIS

REACTIONS (2)
  - BLEEDING VARICOSE VEIN [None]
  - OFF LABEL USE [None]
